FAERS Safety Report 25359377 (Version 1)
Quarter: 2025Q2

REPORT INFORMATION
  Report Type: Spontaneous
  Country: AU (occurrence: AU)
  Receive Date: 20250526
  Receipt Date: 20250526
  Transmission Date: 20250716
  Serious: Yes (Death, Other)
  Sender: TAKEDA
  Company Number: AU-TAKEDA-2025TUS048749

PATIENT
  Sex: Female

DRUGS (2)
  1. MESALAMINE [Suspect]
     Active Substance: MESALAMINE
     Indication: Thymoma malignant
  2. BUDESONIDE [Suspect]
     Active Substance: BUDESONIDE
     Indication: Thymoma malignant

REACTIONS (1)
  - Drug ineffective [Fatal]
